FAERS Safety Report 11828365 (Version 1)
Quarter: 2015Q4

REPORT INFORMATION
  Report Type: Report from Study
  Country: TW (occurrence: TW)
  Receive Date: 20151211
  Receipt Date: 20151211
  Transmission Date: 20160305
  Serious: No
  Sender: FDA-Public Use
  Company Number: PHHY2015TW053532

PATIENT
  Age: 69 Year
  Sex: Female

DRUGS (7)
  1. SPIRONOLACTONE. [Concomitant]
     Active Substance: SPIRONOLACTONE
     Indication: ARRHYTHMIA
     Dosage: 25 MG, UNK
     Route: 048
     Dates: end: 20130815
  2. TASIGNA [Suspect]
     Active Substance: NILOTINIB
     Indication: CHRONIC MYELOID LEUKAEMIA
     Dosage: 600 OT, UNK
     Route: 048
     Dates: start: 20121127
  3. LICHIA [Concomitant]
     Indication: GASTRIC ULCER
     Dosage: 1 DF, UNK
     Route: 048
     Dates: start: 20140703, end: 20140706
  4. LOSARTAN. [Concomitant]
     Active Substance: LOSARTAN
     Indication: ARRHYTHMIA
     Dosage: 25 MG, UNK
     Route: 048
     Dates: end: 20130815
  5. RAMIPRIL. [Concomitant]
     Active Substance: RAMIPRIL
     Indication: HYPERTENSION
     Dosage: 2.5 MG, UNK
     Route: 048
     Dates: start: 20130926
  6. FAMOTIDINE. [Concomitant]
     Active Substance: FAMOTIDINE
     Indication: ARRHYTHMIA
     Dosage: 20 MG, UNK
     Route: 048
     Dates: end: 20130815
  7. RABEPRAZOLE [Concomitant]
     Active Substance: RABEPRAZOLE
     Indication: GASTRITIS
     Dosage: 20 MG, UNK
     Route: 048
     Dates: end: 20130606

REACTIONS (6)
  - Left ventricular dysfunction [Recovering/Resolving]
  - Dilatation ventricular [Recovering/Resolving]
  - Tricuspid valve incompetence [Recovering/Resolving]
  - Mitral valve incompetence [Recovering/Resolving]
  - Ventricular extrasystoles [Recovering/Resolving]
  - Aortic valve incompetence [Recovering/Resolving]

NARRATIVE: CASE EVENT DATE: 20130327
